FAERS Safety Report 5108100-8 (Version None)
Quarter: 2006Q3

REPORT INFORMATION
  Report Type: 
  Country: None (occurrence: None)
  Receive Date: 20060919
  Receipt Date: 20060118
  Transmission Date: 20061208
  Serious: Yes (Hospitalization)
  Sender: FDA-Public Use
  Company Number: US-ROCHE-432844

PATIENT
  Age: 21 Year
  Sex: Male
  Weight: 86.2 kg

DRUGS (1)
  1. ACCUTANE [Suspect]
     Indication: ACNE
     Route: 048
     Dates: start: 19940110, end: 19950105

REACTIONS (10)
  - ASTHMA [None]
  - COLITIS [None]
  - COLITIS ULCERATIVE [None]
  - HAEMATOCRIT DECREASED [None]
  - HAEMOGLOBIN DECREASED [None]
  - ILEITIS [None]
  - INFLAMMATORY BOWEL DISEASE [None]
  - INTESTINAL OBSTRUCTION [None]
  - PNEUMONIA [None]
  - RESPIRATORY FAILURE [None]
